FAERS Safety Report 16271945 (Version 1)
Quarter: 2019Q2

REPORT INFORMATION
  Report Type: Spontaneous
  Country: US (occurrence: US)
  Receive Date: 20190503
  Receipt Date: 20190503
  Transmission Date: 20190711
  Serious: No
  Sender: FDA-Public Use
  Company Number: US-TARO-2018TAR00513

PATIENT
  Sex: Male
  Weight: 95.24 kg

DRUGS (1)
  1. CLINDAMYCIN PHOSPHATE TOPICAL SOLUTION USP 1% [Suspect]
     Active Substance: CLINDAMYCIN PHOSPHATE
     Indication: ACNE
     Dosage: A DAB TO THE AFFECTED AREA, 1X/DAY AT NIGHT AS NEEDED
     Route: 061
     Dates: end: 201807

REACTIONS (4)
  - Accidental exposure to product [Recovered/Resolved]
  - Eye irritation [Recovered/Resolved]
  - Product taste abnormal [Recovered/Resolved]
  - Product packaging issue [Recovered/Resolved]
